FAERS Safety Report 25955011 (Version 1)
Quarter: 2025Q4

REPORT INFORMATION
  Report Type: Report from Study
  Country: CA (occurrence: CA)
  Receive Date: 20251024
  Receipt Date: 20251024
  Transmission Date: 20260117
  Serious: Yes (Disabling)
  Sender: BIOCON
  Company Number: CA-MIMS-BCONMC-10261

PATIENT

DRUGS (5)
  1. HULIO [Suspect]
     Active Substance: ADALIMUMAB-FKJP
     Indication: Product used for unknown indication
     Dosage: 40 MILLIGRAM, Q2W
     Route: 058
     Dates: start: 20241218
  2. HULIO [Suspect]
     Active Substance: ADALIMUMAB-FKJP
  3. HULIO [Suspect]
     Active Substance: ADALIMUMAB-FKJP
  4. HULIO [Suspect]
     Active Substance: ADALIMUMAB-FKJP
  5. HULIO [Suspect]
     Active Substance: ADALIMUMAB-FKJP

REACTIONS (6)
  - Loss of personal independence in daily activities [Unknown]
  - Head discomfort [Unknown]
  - Burning sensation [Unknown]
  - Adverse reaction [Unknown]
  - Dizziness [Unknown]
  - Rash [Unknown]
